FAERS Safety Report 9099458 (Version 2)
Quarter: 2013Q2

REPORT INFORMATION
  Report Type: Report from Study
  Country: US (occurrence: US)
  Receive Date: 20130213
  Receipt Date: 20130418
  Transmission Date: 20140414
  Serious: Yes (Death, Hospitalization)
  Sender: FDA-Public Use
  Company Number: US-ROCHE-1058075

PATIENT
  Age: 64 Year
  Sex: Male
  Weight: 71.73 kg

DRUGS (7)
  1. ZELBORAF [Suspect]
     Indication: STOMATITIS
     Route: 048
     Dates: start: 20120201
  2. ZELBORAF [Suspect]
     Indication: ARTHRALGIA
  3. ZELBORAF [Suspect]
     Indication: NAUSEA
  4. ZELBORAF [Suspect]
     Indication: METASTATIC MALIGNANT MELANOMA
  5. NEURONTIN [Concomitant]
     Indication: SPINAL COLUMN STENOSIS
     Route: 048
  6. CLINDAMYCIN [Concomitant]
     Dosage: AS REQUIRED
     Route: 061
  7. HYDROCORTISONE [Concomitant]
     Dosage: 1-1% DOSE
     Route: 061

REACTIONS (35)
  - Convulsion [Fatal]
  - Multi-organ failure [Fatal]
  - Brain operation [Fatal]
  - Brain tumour operation [Unknown]
  - Stomatitis [Not Recovered/Not Resolved]
  - Arthralgia [Unknown]
  - Nausea [Unknown]
  - Flushing [Unknown]
  - Fatigue [Not Recovered/Not Resolved]
  - Dry skin [Unknown]
  - Skin exfoliation [Unknown]
  - Decreased appetite [Not Recovered/Not Resolved]
  - Rash pruritic [Unknown]
  - Alopecia [Unknown]
  - Blister [Unknown]
  - Sunburn [Unknown]
  - Swelling face [Unknown]
  - Eye swelling [Unknown]
  - Vision blurred [Not Recovered/Not Resolved]
  - Dry eye [Not Recovered/Not Resolved]
  - Fatigue [Not Recovered/Not Resolved]
  - Lumbar spinal stenosis [Not Recovered/Not Resolved]
  - Hypoaesthesia [Not Recovered/Not Resolved]
  - Arthralgia [Not Recovered/Not Resolved]
  - Vomiting [Recovered/Resolved]
  - Diarrhoea [Recovered/Resolved]
  - Rash [Recovered/Resolved]
  - Stomatitis [Not Recovered/Not Resolved]
  - Decreased appetite [Not Recovered/Not Resolved]
  - Weight decreased [Not Recovered/Not Resolved]
  - Skin mass [Not Recovered/Not Resolved]
  - Fatigue [Not Recovered/Not Resolved]
  - Radiotherapy [Recovered/Resolved]
  - Central nervous system lesion [Recovered/Resolved]
  - Speech disorder [Not Recovered/Not Resolved]
